FAERS Safety Report 21405279 (Version 1)
Quarter: 2022Q4

REPORT INFORMATION
  Report Type: Spontaneous
  Country: TH (occurrence: TH)
  Receive Date: 20221004
  Receipt Date: 20221004
  Transmission Date: 20230113
  Serious: Yes (Death, Congenital Anomaly, Other)
  Sender: FDA-Public Use
  Company Number: TH-IPCA LABORATORIES LIMITED-IPC-2022-TH-001643

PATIENT

DRUGS (1)
  1. WARFARIN [Suspect]
     Active Substance: WARFARIN
     Indication: Product used for unknown indication
     Dosage: 5 MILLIGRAM, QD
     Route: 064

REACTIONS (13)
  - Haemorrhage intracranial [Fatal]
  - Anaemia [Fatal]
  - Coagulopathy [Fatal]
  - Subarachnoid haemorrhage [Fatal]
  - Cerebral infarction [Fatal]
  - Thrombosis [Fatal]
  - Subdural haematoma [Fatal]
  - Intraventricular haemorrhage [Fatal]
  - Periventricular haemorrhage neonatal [Fatal]
  - Congenital hydrocephalus [Fatal]
  - Hypoxic ischaemic encephalopathy neonatal [Fatal]
  - Foetal growth restriction [Unknown]
  - Foetal exposure during pregnancy [Unknown]
